FAERS Safety Report 13557696 (Version 1)
Quarter: 2017Q2

REPORT INFORMATION
  Report Type: Spontaneous
  Country: BR (occurrence: BR)
  Receive Date: 20170518
  Receipt Date: 20170518
  Transmission Date: 20170830
  Serious: Yes (Other)
  Sender: FDA-Public Use
  Company Number: BR-PFIZER INC-2017210560

PATIENT
  Age: 63 Year
  Sex: Male

DRUGS (2)
  1. FRONTAL XR [Suspect]
     Active Substance: ALPRAZOLAM
     Dosage: UNK
     Dates: start: 2012
  2. OLMETECANLO [Concomitant]
     Active Substance: AMLODIPINE BESYLATE\OLMESARTAN MEDOXOMIL
     Dosage: UNK
     Dates: start: 201611

REACTIONS (1)
  - Diabetes mellitus [Not Recovered/Not Resolved]

NARRATIVE: CASE EVENT DATE: 2015
